FAERS Safety Report 9569112 (Version 1)
Quarter: 2013Q3

REPORT INFORMATION
  Report Type: Spontaneous
  Country: US (occurrence: US)
  Receive Date: 20130930
  Receipt Date: 20130930
  Transmission Date: 20140515
  Serious: No
  Sender: FDA-Public Use
  Company Number: US-AMGEN-USASP2013059718

PATIENT
  Age: 43 Year
  Sex: Female
  Weight: 91.61 kg

DRUGS (8)
  1. ENBREL [Suspect]
     Indication: PRODUCT USED FOR UNKNOWN INDICATION
     Dosage: 50 MG, QWK
     Route: 058
  2. LITHIUM CARBONATE [Concomitant]
     Dosage: 150 MG, UNK
  3. ALLEGRA [Concomitant]
     Dosage: 180 MG, UNK
  4. LISINOPRIL [Concomitant]
     Dosage: 10 MG, UNK
  5. VITAMIN E                          /00110501/ [Concomitant]
     Dosage: 100 UNIT, UNK
  6. ASPIRIN [Concomitant]
     Dosage: 81 MG, UNK
  7. FERROUS SULFATE [Concomitant]
     Dosage: UNK
  8. ENJUVIA [Concomitant]
     Dosage: 0.3 MG, UNK

REACTIONS (2)
  - Diarrhoea [Unknown]
  - Fatigue [Unknown]
